FAERS Safety Report 24350992 (Version 1)
Quarter: 2024Q3

REPORT INFORMATION
  Report Type: Spontaneous
  Country: BR (occurrence: BR)
  Receive Date: 20240923
  Receipt Date: 20240923
  Transmission Date: 20241017
  Serious: Yes (Other)
  Sender: NOVARTIS
  Company Number: BR-002147023-NVSC2024BR134618

PATIENT
  Age: 37 Year
  Sex: Male
  Weight: 83 kg

DRUGS (1)
  1. COSENTYX [Suspect]
     Active Substance: SECUKINUMAB
     Indication: Psoriasis
     Dosage: 300 MG (300 MG INJECTION CONTAIN 1 FILLED SYRINGE VD TRANS X 2ML + 1 ML APPLICATOR PEN)
     Route: 058
     Dates: start: 20240523

REACTIONS (3)
  - Pyrexia [Unknown]
  - Erythema [Recovering/Resolving]
  - Parvovirus B19 infection [Unknown]

NARRATIVE: CASE EVENT DATE: 20240622
